FAERS Safety Report 4270756-X (Version None)
Quarter: 2004Q1

REPORT INFORMATION
  Report Type: 
  Country: None (occurrence: None)
  Receive Date: 20040114
  Receipt Date: 20031127
  Transmission Date: 20041129
  Serious: Yes (Death, Hospitalization)
  Sender: FDA-Public Use
  Company Number: IT-ROCHE-353002

PATIENT
  Age: 40 Year
  Sex: Male
  Weight: 62.3 kg

DRUGS (4)
  1. ENFUVIRTIDE [Suspect]
     Indication: HIV INFECTION
     Route: 058
     Dates: start: 20030409, end: 20031126
  2. ZERIT [Concomitant]
     Dates: start: 20030409, end: 20031126
  3. VIREAD [Concomitant]
     Dates: start: 20030409, end: 20031126
  4. KALETRA [Concomitant]
     Dates: start: 20030409, end: 20031126

REACTIONS (7)
  - BLOOD LACTIC ACID INCREASED [None]
  - CEREBROVASCULAR ACCIDENT [None]
  - COUGH [None]
  - DYSPNOEA [None]
  - GUILLAIN-BARRE SYNDROME [None]
  - HYPERTENSION [None]
  - POLYNEUROPATHY [None]
